FAERS Safety Report 4724702-2 (Version None)
Quarter: 2005Q3

REPORT INFORMATION
  Report Type: 
  Country: None (occurrence: None)
  Receive Date: 20050720
  Receipt Date: 20050720
  Transmission Date: 20060218
  Serious: Yes (Life-Threatening, Hospitalization)
  Sender: FDA-Public Use
  Company Number: None

PATIENT
  Age: 35 Year
  Sex: Female
  Weight: 58.9676 kg

DRUGS (2)
  1. ORTHO EVRA [Suspect]
     Indication: CONTRACEPTION
     Dosage: ONE   DAILY  CUTANEOUS
     Route: 003
     Dates: start: 20040101, end: 20050718
  2. ORTHO EVRA [Suspect]
     Indication: ENDOMETRIOSIS
     Dosage: ONE   DAILY  CUTANEOUS
     Route: 003
     Dates: start: 20040101, end: 20050718

REACTIONS (1)
  - ISCHAEMIC STROKE [None]
